FAERS Safety Report 15010016 (Version 1)
Quarter: 2018Q2

REPORT INFORMATION
  Report Type: Spontaneous
  Country: CR (occurrence: CR)
  Receive Date: 20180527
  Receipt Date: 20180527
  Transmission Date: 20180711
  Serious: Yes (Other)
  Sender: FDA-Public Use
  Company Number: None

PATIENT
  Age: 58 Year
  Sex: Female
  Weight: 76.5 kg

DRUGS (9)
  1. LEVAQUIN [Suspect]
     Active Substance: LEVOFLOXACIN
     Indication: URINARY TRACT INFECTION
     Route: 048
     Dates: start: 20091209, end: 20091214
  2. LEVOTHYROXINE. [Concomitant]
     Active Substance: LEVOTHYROXINE
  3. VITAMIN D [Concomitant]
     Active Substance: CHOLECALCIFEROL
  4. INSULIN [Concomitant]
     Active Substance: INSULIN NOS
  5. ESPIRONOLACTONA [Concomitant]
     Active Substance: SPIRONOLACTONE
  6. IRBESARTAN. [Concomitant]
     Active Substance: IRBESARTAN
  7. IRON [Concomitant]
     Active Substance: IRON
  8. AMLODOPINO [Concomitant]
  9. ERYTHROPOEITIN [Concomitant]

REACTIONS (18)
  - Swelling [None]
  - Pain in extremity [None]
  - Tinnitus [None]
  - Deafness unilateral [None]
  - Aortic aneurysm [None]
  - Skin sensitisation [None]
  - Sleep terror [None]
  - Renal disorder [None]
  - Balance disorder [None]
  - Wrist fracture [None]
  - Gait disturbance [None]
  - Blood cholesterol increased [None]
  - Blood pressure increased [None]
  - Visual acuity reduced [None]
  - Muscle spasms [None]
  - Vision blurred [None]
  - Fall [None]
  - Fatigue [None]

NARRATIVE: CASE EVENT DATE: 20091209
